FAERS Safety Report 19571297 (Version 2)
Quarter: 2021Q3

REPORT INFORMATION
  Report Type: Report from Study
  Country: CA (occurrence: CA)
  Receive Date: 20210716
  Receipt Date: 20210812
  Transmission Date: 20211014
  Serious: Yes (Other)
  Sender: FDA-Public Use
  Company Number: CA-BAUSCH-BL-2021-022681

PATIENT
  Age: 59 Year
  Sex: Female

DRUGS (3)
  1. SILIQ [Suspect]
     Active Substance: BRODALUMAB
     Indication: PSORIASIS
     Dosage: 210 MG / 1.5 ML, WEEK 0,
     Route: 058
     Dates: start: 20210617
  2. SILIQ [Suspect]
     Active Substance: BRODALUMAB
     Dosage: 210 MG / 1.5 ML, WEEK 1
     Route: 058
     Dates: start: 20210624
  3. SILIQ [Suspect]
     Active Substance: BRODALUMAB
     Dosage: 210 MG / 1.5 ML, WEEK 3
     Route: 058
     Dates: start: 202106

REACTIONS (12)
  - Back pain [Unknown]
  - Oral mucosal discolouration [Recovered/Resolved]
  - Abdominal pain upper [Unknown]
  - Cough [Unknown]
  - Headache [Not Recovered/Not Resolved]
  - Injection site pain [Not Recovered/Not Resolved]
  - Diarrhoea [Unknown]
  - Arthralgia [Not Recovered/Not Resolved]
  - Viral infection [Unknown]
  - Insomnia [Unknown]
  - Palpitations [Not Recovered/Not Resolved]
  - Cardiac flutter [Unknown]

NARRATIVE: CASE EVENT DATE: 2021
